FAERS Safety Report 8281407-1 (Version None)
Quarter: 2012Q2

REPORT INFORMATION
  Report Type: 
  Country: None (occurrence: None)
  Receive Date: 20120413
  Receipt Date: 20120406
  Transmission Date: 20120825
  Serious: Yes (Other)
  Sender: FDA-Public Use
  Company Number: US-PFIZER INC-2011268901

PATIENT
  Sex: Female
  Weight: 92.063 kg

DRUGS (7)
  1. MEDROL [Suspect]
     Indication: AUTOIMMUNE DISORDER
     Dosage: 4 MG, DAILY
     Route: 048
  2. MEDROL [Suspect]
     Indication: RHEUMATOID ARTHRITIS
  3. MEDROL [Suspect]
     Indication: INFLAMMATION
  4. MEDROL [Suspect]
     Indication: VASCULITIS
  5. MEDROL [Suspect]
     Indication: CONTRACEPTION
  6. MEDROL [Suspect]
     Indication: LYMPHATIC DISORDER
  7. MEDROL [Suspect]
     Indication: MIXED CONNECTIVE TISSUE DISEASE

REACTIONS (8)
  - MEDICATION ERROR [None]
  - BLOOD PRESSURE INCREASED [None]
  - MALABSORPTION [None]
  - CEREBRAL DISORDER [None]
  - RENAL DISORDER [None]
  - STEROID WITHDRAWAL SYNDROME [None]
  - PRODUCT QUALITY ISSUE [None]
  - DRUG INEFFECTIVE [None]
